FAERS Safety Report 17729719 (Version 1)
Quarter: 2020Q2

REPORT INFORMATION
  Report Type: Report from Study
  Country: MX (occurrence: MX)
  Receive Date: 20200430
  Receipt Date: 20200430
  Transmission Date: 20200714
  Serious: Yes (Other)
  Sender: FDA-Public Use
  Company Number: NVSC2020MX102354

PATIENT
  Age: 70 Year
  Sex: Female
  Weight: 64 kg

DRUGS (9)
  1. DILATREND [Concomitant]
     Active Substance: CARVEDILOL
     Indication: HYPERTENSION
  2. ENTRESTO [Suspect]
     Active Substance: SACUBITRIL\VALSARTAN
     Indication: BLOOD PRESSURE ABNORMAL
     Dosage: 50 MG, BID (1 DF)
     Route: 048
     Dates: start: 201906
  3. DILATREND [Concomitant]
     Active Substance: CARVEDILOL
     Indication: CARDIAC FAILURE
     Dosage: 0.5 MG(6.25 MG,IN THE MORNING AND AT NIGHT)
     Route: 048
     Dates: start: 201906
  4. SPIRONOLACTONE. [Concomitant]
     Active Substance: SPIRONOLACTONE
     Indication: DIURETIC THERAPY
     Dosage: 1 DF, QD(25 MG) (STARTED 4 YEARS AGO)
     Route: 048
  5. FUROSEMIDE. [Concomitant]
     Active Substance: FUROSEMIDE
     Indication: DIURETIC THERAPY
     Dosage: 2 DF, QD(40 MG) (STARTED 6 YEARS AGO))
     Route: 048
  6. XARELTO [Concomitant]
     Active Substance: RIVAROXABAN
     Indication: THROMBOSIS
     Dosage: 0.5 DF(2.5 MG,IN THE MORNING)
     Route: 048
     Dates: start: 201906
  7. TECNOVID [Concomitant]
     Indication: ATRIAL FIBRILLATION
     Dosage: 1 DF, QD(IN THE MORNING) (STARTED 18 YEARS AGO)
     Route: 048
  8. ENTRESTO [Suspect]
     Active Substance: SACUBITRIL\VALSARTAN
     Indication: CARDIAC FAILURE
     Dosage: UNK(IN THE MORNING AND AT NIGHT)
     Route: 048
     Dates: start: 201907
  9. LANOXIN [Concomitant]
     Active Substance: DIGOXIN
     Indication: THROMBOSIS
     Dosage: 0.5 DF(AT MIDDAY)
     Route: 048
     Dates: start: 201906

REACTIONS (11)
  - Blood pressure increased [Not Recovered/Not Resolved]
  - Product prescribing error [Unknown]
  - Ejection fraction decreased [Unknown]
  - Ejection fraction [Unknown]
  - Nausea [Not Recovered/Not Resolved]
  - Cerebrovascular disorder [Recovered/Resolved]
  - Disorientation [Recovered/Resolved]
  - Vision blurred [Recovered/Resolved]
  - Product administration error [Unknown]
  - Wrong technique in product usage process [Unknown]
  - Product use in unapproved indication [Unknown]

NARRATIVE: CASE EVENT DATE: 201907
